FAERS Safety Report 8504846-X (Version None)
Quarter: 2012Q2

REPORT INFORMATION
  Report Type: 
  Country: None (occurrence: None)
  Receive Date: 20120405
  Receipt Date: 20100927
  Transmission Date: 20120825
  Serious: Yes (Other)
  Sender: FDA-Public Use
  Company Number: PHHY2010US57087

PATIENT
  Age: 62 Year
  Sex: Female

DRUGS (14)
  1. HYDROCODONE BITARTRATE [Concomitant]
  2. VITAMINS (NO INGREDIENTS/SUBSTANCES) [Concomitant]
  3. OMEPRAZOLE [Concomitant]
  4. CYCLOPENTOLATE HCL [Concomitant]
  5. RECLAST [Suspect]
     Indication: OSTEOPOROSIS
     Dosage: 5 MG, IV INFUSION
     Dates: start: 20100817
  6. ZOCOR [Concomitant]
  7. SIMUASTIN [Concomitant]
  8. VICODIN [Concomitant]
  9. VALIUM [Concomitant]
  10. SIMVASTATIN [Concomitant]
  11. ESTER-C (CALCIUM ASCORBATE) [Concomitant]
  12. ACIDOPHILUS TRIPLE OMEGA 3-6-9 CENTRUM SILVER [Concomitant]
  13. OMEPRAVOCE [Concomitant]
  14. PRED FORTE [Concomitant]

REACTIONS (6)
  - IRITIS [None]
  - HEADACHE [None]
  - OCULAR HYPERAEMIA [None]
  - VISION BLURRED [None]
  - PHOTOPHOBIA [None]
  - IRIDOCYCLITIS [None]
